FAERS Safety Report 13856682 (Version 1)
Quarter: 2017Q3

REPORT INFORMATION
  Report Type: Spontaneous
  Country: US (occurrence: US)
  Receive Date: 20170810
  Receipt Date: 20170810
  Transmission Date: 20171127
  Serious: No
  Sender: FDA-Public Use
  Company Number: US-ROCHE-1348122

PATIENT
  Age: 18 Year
  Sex: Female

DRUGS (4)
  1. MUCINEX [Concomitant]
     Active Substance: GUAIFENESIN
     Indication: RHINORRHOEA
     Route: 048
     Dates: start: 20140207
  2. TAMIFLU [Suspect]
     Active Substance: OSELTAMIVIR PHOSPHATE
     Indication: INFLUENZA
     Route: 048
     Dates: start: 20140207, end: 20140210
  3. NASONEX [Concomitant]
     Active Substance: MOMETASONE FUROATE
     Indication: NASAL CONGESTION
     Route: 045
     Dates: start: 20140207
  4. MUCINEX [Concomitant]
     Active Substance: GUAIFENESIN
     Indication: COUGH

REACTIONS (6)
  - Dizziness [Recovering/Resolving]
  - Disturbance in attention [Recovering/Resolving]
  - Dizziness [Recovered/Resolved]
  - Vision blurred [Unknown]
  - Tremor [Recovering/Resolving]
  - Gait disturbance [Recovering/Resolving]
